FAERS Safety Report 8118864-7 (Version None)
Quarter: 2012Q1

REPORT INFORMATION
  Report Type: 
  Country: None (occurrence: None)
  Receive Date: 20120207
  Receipt Date: 20120130
  Transmission Date: 20120608
  Serious: Yes (Other)
  Sender: FDA-Public Use
  Company Number: FR-ELI_LILLY_AND_COMPANY-FR201201008762

PATIENT
  Sex: Male

DRUGS (4)
  1. FOLIC ACID [Concomitant]
     Dosage: 0.4 MG, QD
  2. CELESTONE [Concomitant]
     Dosage: UNK, UNKNOWN
  3. ALIMTA [Suspect]
     Indication: LUNG NEOPLASM MALIGNANT
     Dosage: 960 MG, EVERY THREE WEEKS
     Route: 042
     Dates: start: 20110722, end: 20111123
  4. AMLOPINE [Concomitant]
     Dosage: 5 MG, QD

REACTIONS (1)
  - PALMAR-PLANTAR ERYTHRODYSAESTHESIA SYNDROME [None]
